FAERS Safety Report 7926749 (Version 2)
Quarter: 2012Q4

REPORT INFORMATION
  Report Type: 
  Country: US (occurrence: US)
  Receive Date: 20110502
  Receipt Date: 20121112
  Transmission Date: 20130627
  Serious: No
  Sender: FDA-Public Use
  Company Number: US-ASTRAZENECA-2011SE09733

PATIENT
  Age: 78 Year
  Sex: Female

DRUGS (3)
  1. NEXIUM [Suspect]
     Indication: ABDOMINAL DISCOMFORT
     Dosage: TAKEN  IT ONE HOUR PRIOR TO A MEAL
     Route: 048
     Dates: start: 2001
  2. LIPITOR [Concomitant]
  3. CARDIZEM [Concomitant]

REACTIONS (3)
  - Dyspepsia [Unknown]
  - Adverse event [Unknown]
  - Inappropriate schedule of drug administration [Unknown]
